FAERS Safety Report 8452812-5 (Version None)
Quarter: 2012Q2

REPORT INFORMATION
  Report Type: 
  Country: None (occurrence: None)
  Receive Date: 20120620
  Receipt Date: 20120515
  Transmission Date: 20120825
  Serious: No
  Sender: FDA-Public Use
  Company Number: US-VERTEX PHARMACEUTICALS INC.-AE-2012-006138

PATIENT
  Sex: Male
  Weight: 74.91 kg

DRUGS (6)
  1. PEGASYS [Concomitant]
     Indication: HEPATITIS C
     Route: 058
     Dates: start: 20120128
  2. RIBAVIRIN [Concomitant]
     Indication: HEPATITIS C
     Route: 048
     Dates: start: 20120128
  3. RIBAVIRIN [Concomitant]
     Route: 048
     Dates: start: 20120124
  4. RIBAVIRIN [Concomitant]
     Route: 048
     Dates: start: 20120323
  5. INCIVEK [Suspect]
     Indication: HEPATITIS C
     Route: 048
     Dates: start: 20120128, end: 20120420
  6. RIBAVIRIN [Concomitant]
     Dates: start: 20120424

REACTIONS (4)
  - BLOOD CREATININE INCREASED [None]
  - ANAEMIA [None]
  - HYPOTENSION [None]
  - DEHYDRATION [None]
